FAERS Safety Report 23355177 (Version 3)
Quarter: 2024Q1

REPORT INFORMATION
  Report Type: Spontaneous
  Country: US (occurrence: US)
  Receive Date: 20240102
  Receipt Date: 20240112
  Transmission Date: 20240409
  Serious: No
  Sender: FDA-Public Use
  Company Number: US-OPELLA-2023OHG020714

PATIENT
  Sex: Male

DRUGS (1)
  1. CORTIZONE 10 INTENSIVE HEALING FOR ECZEMA [Suspect]
     Active Substance: HYDROCORTISONE
     Indication: Pruritus
     Route: 061

REACTIONS (2)
  - Therapeutic product effect decreased [Unknown]
  - No adverse event [Unknown]
